FAERS Safety Report 23724769 (Version 2)
Quarter: 2024Q2

REPORT INFORMATION
  Report Type: Report from Study
  Country: US (occurrence: US)
  Receive Date: 20240409
  Receipt Date: 20240503
  Transmission Date: 20240716
  Serious: Yes (Other)
  Sender: FDA-Public Use
  Company Number: US-ABBVIE-5706722

PATIENT
  Sex: Male

DRUGS (1)
  1. VENCLEXTA [Suspect]
     Active Substance: VENETOCLAX
     Indication: Chronic lymphocytic leukaemia
     Route: 048
     Dates: start: 202207

REACTIONS (13)
  - Multiple sclerosis [Unknown]
  - Central nervous system lesion [Unknown]
  - Decreased appetite [Unknown]
  - Fatigue [Unknown]
  - Diabetes mellitus [Unknown]
  - Taste disorder [Unknown]
  - Weight decreased [Unknown]
  - Dry skin [Unknown]
  - Skin ulcer [Unknown]
  - Hypersomnia [Unknown]
  - General physical health deterioration [Unknown]
  - Asthenia [Unknown]
  - Loss of personal independence in daily activities [Unknown]

NARRATIVE: CASE EVENT DATE: 20240101
